FAERS Safety Report 4877075-9 (Version None)
Quarter: 2005Q4

REPORT INFORMATION
  Report Type: 
  Country: None (occurrence: None)
  Receive Date: 20051206
  Receipt Date: 20050819
  Transmission Date: 20060501
  Serious: No
  Sender: FDA-Public Use
  Company Number: USA0508106010

PATIENT
  Age: 14 Year
  Sex: Female

DRUGS (3)
  1. CYMBALTA [Suspect]
     Indication: ANXIETY
     Dosage: 30 MG
     Dates: start: 20050817
  2. DDAVP(DESMOPRESSIN ACETATE) [Concomitant]
  3. STRATTERA [Concomitant]

REACTIONS (4)
  - FATIGUE [None]
  - SLEEP DISORDER [None]
  - SOMNOLENCE [None]
  - STOMACH DISCOMFORT [None]
